FAERS Safety Report 4757328-5 (Version None)
Quarter: 2005Q3

REPORT INFORMATION
  Report Type: 
  Country: None (occurrence: None)
  Receive Date: 20050831
  Receipt Date: 20050831
  Transmission Date: 20060218
  Serious: Yes (Life-Threatening, Hospitalization, Other)
  Sender: FDA-Public Use
  Company Number: None

PATIENT
  Age: 25 Year
  Sex: Female
  Weight: 49.8957 kg

DRUGS (1)
  1. ABORTION PILL [Suspect]
     Indication: ABORTION
     Dates: start: 20041101, end: 20050728

REACTIONS (6)
  - AMENORRHOEA [None]
  - COLITIS [None]
  - COMPLICATIONS OF MATERNAL EXPOSURE TO THERAPEUTIC DRUGS [None]
  - INFECTION [None]
  - ORAL INTAKE REDUCED [None]
  - WEIGHT DECREASED [None]
